FAERS Safety Report 20058560 (Version 1)
Quarter: 2021Q4

REPORT INFORMATION
  Report Type: Spontaneous
  Country: US (occurrence: None)
  Receive Date: 20211111
  Receipt Date: 20211111
  Transmission Date: 20220303
  Serious: No
  Sender: FDA-Public Use
  Company Number: None

PATIENT
  Age: 49 Year
  Sex: Female
  Weight: 74.25 kg

DRUGS (4)
  1. TYRVAYA [Suspect]
     Active Substance: VARENICLINE TARTRATE
     Indication: Sjogren^s syndrome
     Dosage: FREQUENCY : TWICE A DAY;?
     Route: 055
     Dates: start: 20211109, end: 20211110
  2. PLAQUENIL [Suspect]
     Active Substance: HYDROXYCHLOROQUINE SULFATE
  3. SPIRONOLACTONE [Suspect]
     Active Substance: SPIRONOLACTONE
  4. VITAMINS [Concomitant]
     Active Substance: VITAMINS

REACTIONS (3)
  - Urticaria [None]
  - Adverse reaction [None]
  - Hyperhidrosis [None]

NARRATIVE: CASE EVENT DATE: 20211110
